FAERS Safety Report 8218377 (Version 4)
Quarter: 2015Q1

REPORT INFORMATION
  Report Type: Report from Study
  Country: JP (occurrence: JP)
  Receive Date: 20111101
  Receipt Date: 20150317
  Transmission Date: 20150721
  Serious: Yes (Death)
  Sender: FDA-Public Use
  Company Number: JP-PFIZER INC-2011261803

PATIENT
  Age: 78 Year
  Sex: Male
  Weight: 63.5 kg

DRUGS (29)
  1. OXYCONTIN [Concomitant]
     Active Substance: OXYCODONE HYDROCHLORIDE
     Dosage: 10 MG, 2X/DAY
     Route: 048
     Dates: start: 20110816, end: 20110826
  2. LASIX [Concomitant]
     Active Substance: FUROSEMIDE
     Dosage: 20 MG, 1X/DAY
     Route: 048
     Dates: start: 20111010, end: 20111014
  3. DECADRON [Suspect]
     Active Substance: DEXAMETHASONE
     Dosage: 1.5 MG, 2X/DAY
     Route: 048
     Dates: start: 20110902, end: 20110908
  4. DECADRON [Suspect]
     Active Substance: DEXAMETHASONE
     Dosage: 9.9 MG, 2X/DAY
     Route: 042
     Dates: start: 20110817, end: 20110819
  5. MAGNESIUM OXIDE. [Concomitant]
     Active Substance: MAGNESIUM OXIDE
     Indication: CONSTIPATION
     Dosage: 330 MG, 3X/DAY
     Route: 048
     Dates: start: 20110811, end: 20110920
  6. ZOMETA [Concomitant]
     Active Substance: ZOLEDRONIC ACID
     Dosage: 4 MG, 1X/DAY
     Route: 041
     Dates: start: 20110907, end: 20110907
  7. LOXONIN [Concomitant]
     Active Substance: LOXOPROFEN SODIUM
     Dosage: 60 MG, 3X/DAY
     Route: 048
     Dates: start: 20110812, end: 20111020
  8. ALDACTONE [Concomitant]
     Active Substance: SPIRONOLACTONE
     Dosage: 25 MG, 1X/DAY
     Route: 048
     Dates: start: 20111010, end: 20111014
  9. DECADRON [Suspect]
     Active Substance: DEXAMETHASONE
     Dosage: 9.9 MG, 1X/DAY
     Route: 042
     Dates: start: 20110820, end: 20110822
  10. PURSENNID [Concomitant]
     Active Substance: SENNOSIDES A AND B
     Indication: CONSTIPATION
     Dosage: 24 MG, 1X/DAY
     Route: 048
     Dates: start: 20110826, end: 20111020
  11. MANNIGEN [Concomitant]
     Active Substance: MANNITOL
     Dosage: 40 ML, 1X/DAY
     Route: 041
     Dates: start: 20111008, end: 20111008
  12. FENTANYL CITRATE. [Concomitant]
     Active Substance: FENTANYL CITRATE
     Dosage: 3 DF, 1X/DAY
     Route: 062
     Dates: start: 20111015, end: 20111020
  13. TEMSIROLIMUS [Suspect]
     Active Substance: TEMSIROLIMUS
     Indication: METASTATIC RENAL CELL CARCINOMA
     Dosage: 15 MG, WEEKLY
     Route: 041
     Dates: start: 20111014, end: 20111021
  14. DECADRON [Suspect]
     Active Substance: DEXAMETHASONE
     Dosage: 4 MG, 2X/DAY
     Route: 048
     Dates: start: 20110823, end: 20110825
  15. DECADRON [Suspect]
     Active Substance: DEXAMETHASONE
     Dosage: 1 MG, 2X/DAY
     Route: 048
     Dates: start: 20110909, end: 20111004
  16. NORVASC [Concomitant]
     Active Substance: AMLODIPINE BESYLATE
     Dosage: 5 MG, 1X/DAY
     Route: 048
     Dates: start: 20110814, end: 20111020
  17. DECADRON [Suspect]
     Active Substance: DEXAMETHASONE
     Indication: CERVICAL CORD COMPRESSION
     Dosage: 19.8 MG, 3X/DAY
     Route: 042
     Dates: start: 20110805, end: 20110807
  18. DECADRON [Suspect]
     Active Substance: DEXAMETHASONE
     Dosage: 18.5 MG, 3X/DAY
     Route: 042
     Dates: start: 20110808, end: 20110810
  19. DECADRON [Suspect]
     Active Substance: DEXAMETHASONE
     Dosage: 1 MG, 1X/DAY
     Dates: start: 20111005, end: 20111020
  20. DECADRON [Suspect]
     Active Substance: DEXAMETHASONE
     Dosage: 13.2 MG, 3X/DAY
     Route: 042
     Dates: start: 20110811, end: 20110813
  21. DECADRON [Suspect]
     Active Substance: DEXAMETHASONE
     Dosage: 9.9 MG, 3X/DAY
     Route: 042
     Dates: start: 20110814, end: 20110816
  22. DECADRON [Suspect]
     Active Substance: DEXAMETHASONE
     Dosage: 2 MG, 2X/DAY
     Route: 048
     Dates: start: 20110826, end: 20110901
  23. OXYCONTIN [Concomitant]
     Active Substance: OXYCODONE HYDROCHLORIDE
     Dosage: 5 MG, 2X/DAY
     Route: 048
     Dates: start: 20110805, end: 20110815
  24. OXYCONTIN [Concomitant]
     Active Substance: OXYCODONE HYDROCHLORIDE
     Dosage: 15 MG, 2X/DAY
     Route: 048
     Dates: start: 20110827, end: 20111014
  25. MAGNESIUM OXIDE. [Concomitant]
     Active Substance: MAGNESIUM OXIDE
     Dosage: 660 MG, 3X/DAY
     Route: 048
     Dates: start: 20110921, end: 20111020
  26. ZOMETA [Concomitant]
     Active Substance: ZOLEDRONIC ACID
     Dosage: 4 MG, 1X/DAY
     Route: 041
     Dates: start: 20111005, end: 20111005
  27. LASIX [Concomitant]
     Active Substance: FUROSEMIDE
     Dosage: 100 MG, 1X/DAY
     Route: 041
     Dates: start: 20111008, end: 20111008
  28. LACTEC G [Concomitant]
     Indication: DECREASED APPETITE
     Dosage: 1000 ML, 1X/DAY
     Route: 041
     Dates: start: 20111016, end: 20111016
  29. RISPERDAL [Concomitant]
     Active Substance: RISPERIDONE
     Indication: RESTLESSNESS
     Dosage: 1 ML, 1X/DAY
     Route: 048
     Dates: start: 20111017, end: 20111018

REACTIONS (3)
  - Metastatic renal cell carcinoma [Fatal]
  - Disease progression [Fatal]
  - Pneumocystis jirovecii pneumonia [Fatal]

NARRATIVE: CASE EVENT DATE: 20111017
